FAERS Safety Report 7888631-8 (Version None)
Quarter: 2011Q4

REPORT INFORMATION
  Report Type: 
  Country: None (occurrence: None)
  Receive Date: 20111103
  Receipt Date: 20111031
  Transmission Date: 20120403
  Serious: Yes (Death, Other)
  Sender: FDA-Public Use
  Company Number: US-TEVA-307351USA

PATIENT
  Age: 69 Year
  Sex: Female

DRUGS (5)
  1. DILTIAZEM HCL [Suspect]
  2. AMIODARONE HCL [Interacting]
     Indication: ATRIAL FIBRILLATION
     Dosage: 1200 MILLIGRAM;
     Route: 048
  3. TACROLIMUS [Suspect]
  4. COLCHICINE [Interacting]
     Dosage: 1.2 MILLIGRAM;
     Route: 048
  5. AMIODARONE HCL [Interacting]
     Route: 042

REACTIONS (8)
  - DIARRHOEA [None]
  - TOXICITY TO VARIOUS AGENTS [None]
  - VOMITING [None]
  - MULTI-ORGAN FAILURE [None]
  - LEUKOPENIA [None]
  - NAUSEA [None]
  - CARDIAC ARREST [None]
  - CARDIOGENIC SHOCK [None]
